FAERS Safety Report 5023580-4 (Version None)
Quarter: 2006Q2

REPORT INFORMATION
  Report Type: 
  Country: None (occurrence: None)
  Receive Date: 20060612
  Receipt Date: 20060509
  Transmission Date: 20061013
  Serious: Yes (Other)
  Sender: FDA-Public Use
  Company Number: PHRM2006FR01520

PATIENT
  Age: 58 Year
  Sex: Male
  Weight: 63 kg

DRUGS (5)
  1. ZOMETA [Suspect]
     Indication: METASTASES TO BONE
     Dosage: 4 MG, QMO
     Route: 042
     Dates: start: 20051101, end: 20060309
  2. CORTANCYL [Concomitant]
     Indication: PAIN
     Dosage: 40 MG DAILY
     Route: 048
  3. NEURONTIN [Concomitant]
     Indication: PAIN
  4. SOPHIDONE [Concomitant]
     Indication: PAIN
  5. OXYNORM [Concomitant]
     Indication: PAIN

REACTIONS (4)
  - OSTEONECROSIS [None]
  - PAIN IN JAW [None]
  - PRIMARY SEQUESTRUM [None]
  - SURGERY [None]
